FAERS Safety Report 19804518 (Version 1)
Quarter: 2021Q3

REPORT INFORMATION
  Report Type: Spontaneous
  Country: DE (occurrence: DE)
  Receive Date: 20210908
  Receipt Date: 20210908
  Transmission Date: 20211014
  Serious: Yes (Hospitalization, Congenital Anomaly, Other)
  Sender: FDA-Public Use
  Company Number: DE-ASTRAZENECA-2021A704902

PATIENT
  Age: 10 Month
  Sex: Male
  Weight: 3.3 kg

DRUGS (5)
  1. ESCITALOPRAM [Suspect]
     Active Substance: ESCITALOPRAM OXALATE
     Indication: DEPRESSION
     Dosage: 10 [MG/D ]
     Route: 064
  2. OMEPRAZOL [Concomitant]
     Active Substance: OMEPRAZOLE
     Indication: PRODUCT USED FOR UNKNOWN INDICATION
     Dosage: 20 [MG/D (BEI BEDARF) ]/ IF REQUIRED
     Route: 064
  3. QUETIAPIN RETARD [Suspect]
     Active Substance: QUETIAPINE
     Indication: BORDERLINE PERSONALITY DISORDER
     Dosage: 300 [MG/D ]/ INITIAL 200MG DAILY, DOSAGE INCREASED TO 300MG DAILY
     Route: 064
     Dates: start: 20200104, end: 20201012
  4. BOOSTRIX [Concomitant]
     Active Substance: TETANUS TOXOID, REDUCED DIPHTHERIA TOXOID AND ACELLULAR PERTUSSIS VACCINE, ADSORBED ANTIGENS
     Indication: IMMUNISATION
     Route: 064
     Dates: start: 20200820, end: 20200820
  5. FOLSAURE [Concomitant]
     Active Substance: FOLIC ACID
     Indication: PROPHYLAXIS OF NEURAL TUBE DEFECT
     Route: 064
     Dates: start: 20200104, end: 20200909

REACTIONS (2)
  - Cleft lip and palate [Recovered/Resolved with Sequelae]
  - Foetal exposure during pregnancy [Unknown]
